FAERS Safety Report 21115156 (Version 1)
Quarter: 2022Q3

REPORT INFORMATION
  Report Type: Spontaneous
  Country: US (occurrence: US)
  Receive Date: 20220721
  Receipt Date: 20220721
  Transmission Date: 20221027
  Serious: No
  Sender: FDA-Public Use
  Company Number: US-PFIZER INC-PV202200026682

PATIENT
  Sex: Female

DRUGS (1)
  1. HYDROXYZINE PAMOATE [Suspect]
     Active Substance: HYDROXYZINE PAMOATE
     Indication: Dermatitis atopic
     Dosage: UNK

REACTIONS (1)
  - Therapeutic product effect incomplete [Recovered/Resolved]
